FAERS Safety Report 8042658-4 (Version None)
Quarter: 2012Q1

REPORT INFORMATION
  Report Type: 
  Country: None (occurrence: None)
  Receive Date: 20120112
  Receipt Date: 20120104
  Transmission Date: 20120608
  Serious: Yes (Disabling)
  Sender: FDA-Public Use
  Company Number: US-MERCK-1104USA02992

PATIENT
  Age: 41 Year
  Sex: Male
  Weight: 91 kg

DRUGS (2)
  1. PROPECIA [Suspect]
     Indication: ANDROGENETIC ALOPECIA
     Route: 048
     Dates: start: 19980101, end: 20101201
  2. PROPECIA [Suspect]
     Indication: ALOPECIA
     Route: 048
     Dates: start: 19980101, end: 20101201

REACTIONS (12)
  - LIBIDO DECREASED [None]
  - DERMOID CYST [None]
  - SOMNOLENCE [None]
  - ERECTILE DYSFUNCTION [None]
  - SEMEN VOLUME DECREASED [None]
  - ANHEDONIA [None]
  - MALE ORGASMIC DISORDER [None]
  - ANXIETY [None]
  - PAIN [None]
  - EMOTIONAL DISTRESS [None]
  - BRONCHITIS [None]
  - PANIC ATTACK [None]
